FAERS Safety Report 13017357 (Version 1)
Quarter: 2016Q4

REPORT INFORMATION
  Report Type: Spontaneous
  Country: US (occurrence: US)
  Receive Date: 20161212
  Receipt Date: 20161212
  Transmission Date: 20170207
  Serious: No
  Sender: FDA-Public Use
  Company Number: US-TEVA-701730USA

PATIENT
  Sex: Male

DRUGS (1)
  1. AMLODIPINE W/VALSARTAN [Suspect]
     Active Substance: AMLODIPINE\VALSARTAN
     Dosage: 10 MG/320 MG
     Route: 065

REACTIONS (2)
  - Medication residue present [Unknown]
  - Irritable bowel syndrome [Unknown]
